FAERS Safety Report 12964392 (Version 4)
Quarter: 2017Q1

REPORT INFORMATION
  Report Type: Spontaneous
  Country: US (occurrence: US)
  Receive Date: 20161122
  Receipt Date: 20170206
  Transmission Date: 20170428
  Serious: Yes (Hospitalization, Other)
  Sender: FDA-Public Use
  Company Number: US-PFIZER INC-2016540107

PATIENT
  Age: 35 Year
  Sex: Female
  Weight: 92 kg

DRUGS (16)
  1. LYRICA [Suspect]
     Active Substance: PREGABALIN
     Dosage: 150 MG, 2X/DAY
  2. LYRICA [Suspect]
     Active Substance: PREGABALIN
     Dosage: 100 MG, 3X/DAY (AM, NOON, PM)
  3. DULOXETINE. [Concomitant]
     Active Substance: DULOXETINE
     Dosage: 30 MG IN THE MORNING AND 60 MG AT NIGHT , 2X/DAY
     Route: 048
  4. DULOXETINE. [Concomitant]
     Active Substance: DULOXETINE
     Dosage: 60 MG, 2X/DAY
     Route: 048
  5. NUCYNTA [Concomitant]
     Active Substance: TAPENTADOL HYDROCHLORIDE
     Indication: NEURALGIA
     Dosage: 250 MG, 2X/DAY (AM-PM)
     Dates: start: 20100628
  6. CYMBALTA [Concomitant]
     Active Substance: DULOXETINE HYDROCHLORIDE
     Indication: ANXIETY
     Dosage: 60 MG, 2X/DAY (AM AND PM)
     Dates: start: 20100628
  7. LYRICA [Suspect]
     Active Substance: PREGABALIN
     Indication: NEURALGIA
     Dosage: 50 MG, 1X/DAY
     Route: 048
     Dates: start: 200911
  8. LYRICA [Suspect]
     Active Substance: PREGABALIN
     Dosage: 150 MG, 4X/DAY
  9. LYRICA [Suspect]
     Active Substance: PREGABALIN
     Dosage: 150 MG, 3X/DAY
  10. LYRICA [Suspect]
     Active Substance: PREGABALIN
     Dosage: 100 MG, 1X/DAY (MORNING)
     Dates: start: 20100415
  11. LYRICA [Suspect]
     Active Substance: PREGABALIN
     Dosage: 100 MG, 2X/DAY (AM + PM)
     Dates: start: 20100628
  12. LYRICA [Suspect]
     Active Substance: PREGABALIN
     Dosage: 100 MG, 1X/DAY
     Dates: start: 20100413
  13. DULOXETINE. [Concomitant]
     Active Substance: DULOXETINE
     Indication: PAIN
     Dosage: 30 MG, 2X/DAY
     Route: 048
  14. DULOXETINE. [Concomitant]
     Active Substance: DULOXETINE
     Dosage: UNK
     Dates: start: 20100628
  15. LYRICA [Suspect]
     Active Substance: PREGABALIN
     Indication: PAIN
     Dosage: 50 MG, 2X/DAY
  16. LORTAB [Concomitant]
     Active Substance: ACETAMINOPHEN\HYDROCODONE BITARTRATE
     Indication: PAIN
     Dosage: UNK, 2X/DAY (10 AM + PM)
     Dates: start: 20100628

REACTIONS (8)
  - Phantom pain [Not Recovered/Not Resolved]
  - Drug ineffective [Unknown]
  - Nerve injury [Not Recovered/Not Resolved]
  - Atrophy [Not Recovered/Not Resolved]
  - Weight increased [Not Recovered/Not Resolved]
  - Anxiety [Unknown]
  - Peroneal nerve palsy [Not Recovered/Not Resolved]
  - Feeling jittery [Unknown]

NARRATIVE: CASE EVENT DATE: 200911
